FAERS Safety Report 6819257-2 (Version None)
Quarter: 2010Q2

REPORT INFORMATION
  Report Type: 
  Country: None (occurrence: None)
  Receive Date: 20100630
  Receipt Date: 20100621
  Transmission Date: 20101027
  Serious: Yes (Other)
  Sender: FDA-Public Use
  Company Number: 014288

PATIENT

DRUGS (4)
  1. KEPPRA [Suspect]
     Indication: HUNTINGTON'S CHOREA
     Dosage: 250 MG DAILY INCREASING BY 250 MG EVERY 4 DAYS TO A MAXIMUM OF 3000 MG DAILY)
  2. RISPERDAL [Suspect]
     Dosage: 1.5 MG QD)
  3. ALPRAZOLAM [Concomitant]
  4. CELEBREX [Concomitant]

REACTIONS (3)
  - DRUG INTERACTION [None]
  - PARKINSONISM [None]
  - SOMNOLENCE [None]
